FAERS Safety Report 5228614-X (Version None)
Quarter: 2007Q1

REPORT INFORMATION
  Report Type: 
  Country: None (occurrence: None)
  Receive Date: 20070205
  Receipt Date: 20070131
  Transmission Date: 20070707
  Serious: Yes (Death, Hospitalization, Disabling)
  Sender: FDA-Public Use
  Company Number: 2007AP00070

PATIENT
  Sex: Female

DRUGS (5)
  1. IRESSA [Suspect]
     Indication: LUNG ADENOCARCINOMA RECURRENT
     Route: 048
     Dates: start: 20061120, end: 20061215
  2. CONIEL [Concomitant]
     Route: 048
  3. LIPITOR [Concomitant]
     Route: 048
  4. BISOLVON [Concomitant]
     Route: 048
  5. SEFTAC [Concomitant]
     Route: 048

REACTIONS (2)
  - CYSTITIS HAEMORRHAGIC [None]
  - PLATELET COUNT DECREASED [None]
